FAERS Safety Report 21905333 (Version 1)
Quarter: 2023Q1

REPORT INFORMATION
  Report Type: Spontaneous
  Country: CN (occurrence: CN)
  Receive Date: 20230124
  Receipt Date: 20230124
  Transmission Date: 20230418
  Serious: Yes (Hospitalization, Other)
  Sender: FDA-Public Use
  Company Number: CN-SA-SAC20230119001893

PATIENT
  Age: 65 Year
  Sex: Male
  Weight: 62 kg

DRUGS (3)
  1. PLAVIX [Suspect]
     Active Substance: CLOPIDOGREL BISULFATE
     Indication: Coronary artery disease
     Dosage: 75 MG, BID
     Route: 048
     Dates: start: 20220518
  2. INDOBUFEN [Suspect]
     Active Substance: INDOBUFEN
     Indication: Coronary artery disease
     Dosage: 0.1 G, BID
     Route: 048
     Dates: start: 20220608, end: 20230109
  3. INDOBUFEN [Suspect]
     Active Substance: INDOBUFEN
     Dosage: 0.1 G, BID
     Route: 048
     Dates: start: 20230106

REACTIONS (7)
  - Chest discomfort [Unknown]
  - Tachypnoea [Unknown]
  - Asthenia [Unknown]
  - Upper gastrointestinal haemorrhage [Recovering/Resolving]
  - Melaena [Recovered/Resolved]
  - Abdominal pain upper [Unknown]
  - Anaemia [Recovering/Resolving]

NARRATIVE: CASE EVENT DATE: 20220101
